FAERS Safety Report 5325327-0 (Version None)
Quarter: 2007Q2

REPORT INFORMATION
  Report Type: 
  Country: None (occurrence: None)
  Receive Date: 20070515
  Receipt Date: 20070511
  Transmission Date: 20071010
  Serious: Yes (Hospitalization)
  Sender: FDA-Public Use
  Company Number: NL-ASTRAZENECA-2007AC00849

PATIENT
  Age: 30 Year
  Sex: Female
  Weight: 82 kg

DRUGS (1)
  1. PULMICORT [Suspect]
     Indication: ASTHMA
     Route: 055
     Dates: start: 19990101, end: 20050501

REACTIONS (1)
  - CUSHING'S SYNDROME [None]
